FAERS Safety Report 5814108-7 (Version None)
Quarter: 2008Q3

REPORT INFORMATION
  Report Type: 
  Country: None (occurrence: None)
  Receive Date: 20080717
  Receipt Date: 20080705
  Transmission Date: 20090109
  Serious: Yes (Other)
  Sender: FDA-Public Use
  Company Number: US-PFIZER INC-2008056462

PATIENT
  Sex: Female
  Weight: 59.4 kg

DRUGS (14)
  1. CHANTIX [Suspect]
     Indication: SMOKING CESSATION THERAPY
  2. PLAVIX [Concomitant]
  3. ASPIRIN [Concomitant]
  4. TOPROL-XL [Concomitant]
  5. FLUOXETINE [Concomitant]
  6. POTASSIUM CHLORIDE [Concomitant]
  7. CADUET [Concomitant]
  8. NEXIUM [Concomitant]
  9. ALPRAZOLAM [Concomitant]
  10. LYRICA [Concomitant]
  11. HYDROCODONE BITARTRATE [Concomitant]
  12. IBANDRONATE SODIUM [Concomitant]
  13. MONTELUKAST SODIUM [Concomitant]
  14. ALLEGRA-D [Concomitant]

REACTIONS (2)
  - FAECES DISCOLOURED [None]
  - ULCER [None]
